FAERS Safety Report 10111161 (Version 2)
Quarter: 2014Q3

REPORT INFORMATION
  Report Type: Spontaneous
  Country: US (occurrence: None)
  Receive Date: 20140421
  Receipt Date: 20140722
  Transmission Date: 20150326
  Serious: No
  Sender: FDA-Public Use
  Company Number: AEGR000252

PATIENT
  Age: 52 Year
  Sex: Male
  Weight: 89.3 kg

DRUGS (7)
  1. GEMFIBROZIL (GEMFIBROZIL) [Concomitant]
     Active Substance: GEMFIBROZIL
  2. DIOVAN [Concomitant]
     Active Substance: VALSARTAN
  3. CO Q10 (UBIDECARENONE) [Concomitant]
  4. OMEGA 3 FISH OIL (FISH OIL) [Concomitant]
     Active Substance: OMEGA-3 FATTY ACIDS
  5. MULTIVITAMIN (VITAMINS NOS) [Concomitant]
     Active Substance: VITAMINS
  6. JUXTAPID [Suspect]
     Active Substance: LOMITAPIDE MESYLATE
     Indication: BLOOD CHOLESTEROL
     Route: 048
     Dates: start: 201309, end: 20140104
  7. VITAMIN E [Concomitant]
     Active Substance: .ALPHA.-TOCOPHEROL

REACTIONS (8)
  - Heart rate increased [None]
  - Vomiting [None]
  - Pyrexia [None]
  - Blood pressure increased [None]
  - Gastroenteritis viral [None]
  - Diarrhoea [None]
  - Off label use [None]
  - Incorrect dose administered [None]

NARRATIVE: CASE EVENT DATE: 2013
